FAERS Safety Report 18240715 (Version 1)
Quarter: 2020Q3

REPORT INFORMATION
  Report Type: Spontaneous
  Country: US (occurrence: US)
  Receive Date: 20200905
  Receipt Date: 20200905
  Transmission Date: 20201103
  Serious: No
  Sender: FDA-Public Use
  Company Number: None

PATIENT
  Age: 48 Year
  Sex: Female
  Weight: 105.3 kg

DRUGS (12)
  1. TRULICITY [Suspect]
     Active Substance: DULAGLUTIDE
     Indication: DIABETES MELLITUS
     Dosage: OTHER FREQUENCY:ONCE WEEKLY;OTHER ROUTE:INJECTION?
     Dates: start: 20200818
  2. FAMOTIDINE. [Concomitant]
     Active Substance: FAMOTIDINE
  3. ADAVIR [Concomitant]
  4. FLUTACASIN [Concomitant]
  5. METFORMIN [Suspect]
     Active Substance: METFORMIN HYDROCHLORIDE
  6. LISINOPRIL. [Concomitant]
     Active Substance: LISINOPRIL
  7. ZARFIRLUKAST [Concomitant]
     Active Substance: ZAFIRLUKAST
  8. PRAVASTATIN. [Concomitant]
     Active Substance: PRAVASTATIN
  9. TRESIBA [Concomitant]
     Active Substance: INSULIN DEGLUDEC
  10. ALBUTEROL. [Concomitant]
     Active Substance: ALBUTEROL
  11. NOVOLIN R [Concomitant]
     Active Substance: INSULIN HUMAN
  12. PROAIR HFA [Concomitant]
     Active Substance: ALBUTEROL SULFATE

REACTIONS (5)
  - Abdominal distension [None]
  - Fatigue [None]
  - Eructation [None]
  - Abdominal pain [None]
  - Diarrhoea [None]

NARRATIVE: CASE EVENT DATE: 20200903
